FAERS Safety Report 12649870 (Version 5)
Quarter: 2017Q3

REPORT INFORMATION
  Report Type: Report from Study
  Country: BR (occurrence: BR)
  Receive Date: 20160812
  Receipt Date: 20170928
  Transmission Date: 20171127
  Serious: Yes (Life-Threatening, Hospitalization, Other)
  Sender: FDA-Public Use
  Company Number: PHHY2016BR099435

PATIENT
  Sex: Female
  Weight: 56 kg

DRUGS (7)
  1. EXJADE [Suspect]
     Active Substance: DEFERASIROX
     Indication: SICKLE CELL ANAEMIA
     Dosage: 500 MG, UNK
     Route: 048
     Dates: start: 2013
  2. EXJADE [Suspect]
     Active Substance: DEFERASIROX
     Dosage: 1500 MG, UNK
     Route: 048
     Dates: start: 2016
  3. ROCEFIN [Suspect]
     Active Substance: CEFTRIAXONE SODIUM
     Indication: BACTERIAL INFECTION
     Route: 065
  4. CLARITROMICINA [Suspect]
     Active Substance: CLARITHROMYCIN
     Indication: PRODUCT USED FOR UNKNOWN INDICATION
     Route: 065
  5. DESFERAL [Concomitant]
     Active Substance: DEFEROXAMINE MESYLATE
     Indication: PRODUCT USED FOR UNKNOWN INDICATION
     Route: 042
  6. EXJADE [Suspect]
     Active Substance: DEFERASIROX
     Dosage: 2 DF (500 MG), QD (ONCE DAILY)
     Route: 048
     Dates: start: 20160714
  7. EXJADE [Suspect]
     Active Substance: DEFERASIROX
     Dosage: 500 MG, UNK
     Route: 065

REACTIONS (20)
  - Retching [Unknown]
  - Diarrhoea [Unknown]
  - Scratch [Unknown]
  - Pleural effusion [Unknown]
  - Bacterial infection [Unknown]
  - Malaise [Unknown]
  - Drug ineffective [Unknown]
  - Apparent death [Unknown]
  - Blood iron increased [Unknown]
  - Hepatomegaly [Unknown]
  - Hepatic pain [Unknown]
  - Liver disorder [Unknown]
  - Vomiting [Recovered/Resolved]
  - Urine analysis abnormal [Unknown]
  - Haemolysis [Unknown]
  - Abdominal rigidity [Unknown]
  - Fluid retention [Unknown]
  - Weight decreased [Unknown]
  - Diarrhoea [Recovered/Resolved]
  - Vomiting [Unknown]
